FAERS Safety Report 5315306-1 (Version None)
Quarter: 2007Q2

REPORT INFORMATION
  Report Type: 
  Country: None (occurrence: None)
  Receive Date: 20070502
  Receipt Date: 20070420
  Transmission Date: 20071010
  Serious: Yes (Other)
  Sender: FDA-Public Use
  Company Number: FR-PFIZER INC-2007033169

PATIENT

DRUGS (1)
  1. CHAMPIX [Suspect]

REACTIONS (2)
  - ABNORMAL BEHAVIOUR [None]
  - FEELING ABNORMAL [None]
